FAERS Safety Report 8044825-2 (Version None)
Quarter: 2012Q1

REPORT INFORMATION
  Report Type: 
  Country: None (occurrence: None)
  Receive Date: 20120113
  Receipt Date: 20111222
  Transmission Date: 20120608
  Serious: Yes (Other)
  Sender: FDA-Public Use
  Company Number: RO-JNJFOC-20120104121

PATIENT
  Age: 72 Year
  Sex: Male
  Weight: 80 kg

DRUGS (4)
  1. DOXORUBICIN HCL [Suspect]
     Indication: MULTIPLE MYELOMA
     Route: 042
     Dates: start: 20070101
  2. VELCADE [Suspect]
     Dosage: SINCE 1 MONTH AGO
     Route: 042
  3. DOXORUBICIN HCL [Suspect]
     Route: 042
  4. VELCADE [Suspect]
     Indication: MULTIPLE MYELOMA
     Route: 042
     Dates: start: 20070101

REACTIONS (9)
  - MOUTH ULCERATION [None]
  - COUGH [None]
  - DIARRHOEA [None]
  - HERPES ZOSTER [None]
  - HYPERTENSION [None]
  - CONSTIPATION [None]
  - HALLUCINATION [None]
  - DIZZINESS [None]
  - DECREASED APPETITE [None]
